FAERS Safety Report 13858311 (Version 1)
Quarter: 2017Q3

REPORT INFORMATION
  Report Type: Spontaneous
  Country: JP (occurrence: JP)
  Receive Date: 20170811
  Receipt Date: 20170811
  Transmission Date: 20171127
  Serious: Yes (Death)
  Sender: FDA-Public Use
  Company Number: JP-ROCHE-1900201

PATIENT
  Age: 52 Year
  Sex: Male
  Weight: 62 kg

DRUGS (5)
  1. CERTICAN [Concomitant]
     Active Substance: EVEROLIMUS
     Route: 048
     Dates: start: 20151211, end: 20170423
  2. CELLCEPT [Suspect]
     Active Substance: MYCOPHENOLATE MOFETIL\MYCOPHENOLATE MOFETIL HYDROCHLORIDE
     Indication: PROPHYLAXIS AGAINST TRANSPLANT REJECTION
     Route: 048
     Dates: start: 20111206, end: 20170423
  3. NEORAL [Suspect]
     Active Substance: CYCLOSPORINE
     Indication: IMMUNOSUPPRESSION
     Route: 048
     Dates: start: 20111206, end: 20160603
  4. METHYLPREDNISOLONE. [Concomitant]
     Active Substance: METHYLPREDNISOLONE
     Route: 065
  5. BASILIXIMAB [Concomitant]
     Active Substance: BASILIXIMAB
     Dosage: GENETICAL RECOMBINATION
     Route: 065

REACTIONS (2)
  - Rectal cancer [Fatal]
  - Metastases to liver [Fatal]

NARRATIVE: CASE EVENT DATE: 20151019
